FAERS Safety Report 4682836-5 (Version None)
Quarter: 2005Q2

REPORT INFORMATION
  Report Type: 
  Country: None (occurrence: None)
  Receive Date: 20050531
  Receipt Date: 20050215
  Transmission Date: 20051028
  Serious: Yes (Hospitalization)
  Sender: FDA-Public Use
  Company Number: 200510591US

PATIENT
  Age: 80 Year
  Sex: Female
  Weight: 71.67 kg

DRUGS (10)
  1. LOVENOX [Suspect]
     Indication: ATRIAL FIBRILLATION
     Dosage: 60 X ONE DOSE MG SC
     Route: 058
     Dates: start: 20050119, end: 20050119
  2. LOVENOX [Suspect]
     Indication: THROMBOSIS PROPHYLAXIS
     Dosage: 60 X ONE DOSE MG SC
     Route: 058
     Dates: start: 20050119, end: 20050119
  3. LOVENOX [Suspect]
     Indication: ATRIAL FIBRILLATION
     Dosage: 70 MG Q12H SC
     Route: 058
     Dates: start: 20050119, end: 20050122
  4. LOVENOX [Suspect]
     Indication: THROMBOSIS PROPHYLAXIS
     Dosage: 70 MG Q12H SC
     Route: 058
     Dates: start: 20050119, end: 20050122
  5. WARFARIN SODIUM [Concomitant]
  6. . [Concomitant]
  7. . [Concomitant]
  8. CORDARONE [Concomitant]
  9. ASPIRIN [Concomitant]
  10. VITAMIN E [Concomitant]

REACTIONS (5)
  - HAEMATOCRIT DECREASED [None]
  - HAEMOGLOBIN DECREASED [None]
  - INTERNATIONAL NORMALISED RATIO INCREASED [None]
  - MUSCLE HAEMORRHAGE [None]
  - PROTHROMBIN TIME PROLONGED [None]
